FAERS Safety Report 10716751 (Version 1)
Quarter: 2015Q1

REPORT INFORMATION
  Report Type: Spontaneous
  Country: US (occurrence: None)
  Receive Date: 20150115
  Receipt Date: 20150115
  Transmission Date: 20150721
  Serious: Yes (Disabling)
  Sender: FDA-Public Use
  Company Number: None

PATIENT
  Age: 80 Year
  Sex: Female
  Weight: 70.31 kg

DRUGS (1)
  1. BENICAR [Suspect]
     Active Substance: OLMESARTAN MEDOXOMIL
     Dosage: 1/2 OF 20 MG PILL

REACTIONS (7)
  - Diarrhoea [None]
  - Dyspepsia [None]
  - Muscle spasms [None]
  - Constipation [None]
  - Syncope [None]
  - Loss of consciousness [None]
  - Hypotension [None]

NARRATIVE: CASE EVENT DATE: 20141025
